FAERS Safety Report 5161375-1 (Version None)
Quarter: 2006Q4

REPORT INFORMATION
  Report Type: 
  Country: None (occurrence: None)
  Receive Date: 20061121
  Receipt Date: 20061108
  Transmission Date: 20070319
  Serious: Yes (Other)
  Sender: FDA-Public Use
  Company Number: 2006127550

PATIENT
  Age: 64 Year
  Sex: Female

DRUGS (4)
  1. NORVASC [Suspect]
     Indication: HYPERTENSION
     Dosage: 2.5 MG, ORAL
     Route: 048
     Dates: start: 20030424
  2. CILAZAPRIL (CILAZAPRIL) [Suspect]
     Indication: HYPERTENSION
     Dosage: 1 MG, ORAL
     Route: 048
     Dates: start: 20060308, end: 20061019
  3. GLUCOBAY [Concomitant]
  4. AMARYL [Concomitant]

REACTIONS (1)
  - INTERSTITIAL LUNG DISEASE [None]
